FAERS Safety Report 7167954-4 (Version None)
Quarter: 2010Q4

REPORT INFORMATION
  Report Type: 
  Country: None (occurrence: None)
  Receive Date: 20101216
  Receipt Date: 20101210
  Transmission Date: 20110411
  Serious: No
  Sender: FDA-Public Use
  Company Number: US-PFIZER INC-2010170238

PATIENT

DRUGS (2)
  1. GEODON [Suspect]
     Dosage: UNK
  2. ZOLOFT [Concomitant]
     Dosage: UNK

REACTIONS (1)
  - TREMOR [None]
